FAERS Safety Report 8773678 (Version 1)
Quarter: 2012Q4

REPORT INFORMATION
  Report Type: 
  Country: CN (occurrence: CN)
  Receive Date: 20120910
  Receipt Date: 20120910
  Transmission Date: 20130627
  Serious: Yes (Death, Other)
  Sender: FDA-Public Use
  Company Number: PHHY2012CN076917

PATIENT

DRUGS (1)
  1. CICLOSPORIN [Suspect]
     Indication: LIVER TRANSPLANT

REACTIONS (4)
  - Death [Fatal]
  - Renal failure [Unknown]
  - Renal impairment [Unknown]
  - Drug ineffective [Unknown]
